FAERS Safety Report 8016143-X (Version None)
Quarter: 2011Q4

REPORT INFORMATION
  Report Type: 
  Country: None (occurrence: None)
  Receive Date: 20111228
  Receipt Date: 20111228
  Transmission Date: 20120403
  Serious: Yes (Hospitalization)
  Sender: FDA-Public Use
  Company Number: None

PATIENT
  Age: 70 Year
  Sex: Male
  Weight: 90.9 kg

DRUGS (1)
  1. DEXAMETHASONE [Suspect]
     Indication: PROSTATE CANCER
     Dosage: 0.75 MG EVERY DAY PO
     Route: 048
     Dates: start: 20110202

REACTIONS (4)
  - MUSCULAR WEAKNESS [None]
  - MYALGIA [None]
  - DEEP VEIN THROMBOSIS [None]
  - MYOPATHY [None]
